FAERS Safety Report 9213943 (Version 1)
Quarter: 2013Q1

REPORT INFORMATION
  Report Type: Spontaneous
  Country: US (occurrence: None)
  Receive Date: 20120827
  Receipt Date: 20120827
  Transmission Date: 20140127
  Serious: No
  Sender: FDA-Public Use
  Company Number: 351843

PATIENT
  Age: 59 Year
  Sex: Female
  Weight: 67 kg

DRUGS (4)
  1. VICTOZA (LIRAGLUTIDE) SOLUTION FOR INJECTION, 6MG/ML [Suspect]
     Indication: PRODUCT USED FOR UNKNOWN INDICATION
     Route: 058
  2. LANTUS (INSULIN GLARGINE) [Concomitant]
  3. HUMALOG (INSULING LISPRO) [Concomitant]
  4. ACTOS (PIOGLITAZONE HYDROCHLORIDE) [Concomitant]

REACTIONS (2)
  - Weight increased [None]
  - Hypoglycaemia [None]
